FAERS Safety Report 9928853 (Version 1)
Quarter: 2014Q1

REPORT INFORMATION
  Report Type: Spontaneous
  Country: JP (occurrence: JP)
  Receive Date: 20140227
  Receipt Date: 20140227
  Transmission Date: 20141002
  Serious: Yes (Other)
  Sender: FDA-Public Use
  Company Number: JP-SA-2014SA023887

PATIENT
  Age: 57 Year
  Sex: Male

DRUGS (3)
  1. ELPLAT [Suspect]
     Indication: RECTAL CANCER
     Route: 041
     Dates: start: 201208, end: 201302
  2. LEVOFOLINATE [Concomitant]
     Indication: RECTAL CANCER
     Dosage: INFUSION
     Route: 042
     Dates: start: 201208, end: 201302
  3. FLUOROURACIL [Concomitant]
     Indication: RECTAL CANCER
     Dates: start: 201208, end: 201302

REACTIONS (1)
  - Ischiorectal hernia [Recovered/Resolved]
